FAERS Safety Report 24789051 (Version 1)
Quarter: 2024Q4

REPORT INFORMATION
  Report Type: Spontaneous
  Country: TR (occurrence: None)
  Receive Date: 20241230
  Receipt Date: 20241230
  Transmission Date: 20250115
  Serious: Yes (Other)
  Sender: UNICHEM
  Company Number: TR-Unichem Pharmaceuticals (USA) Inc-UCM202412-001748

PATIENT
  Age: 16 Year
  Sex: Male

DRUGS (1)
  1. ARIPIPRAZOLE [Suspect]
     Active Substance: ARIPIPRAZOLE
     Indication: Product used for unknown indication
     Dosage: UNKNOWN

REACTIONS (3)
  - Hyperaldosteronism [Recovered/Resolved]
  - Hypertension [Recovered/Resolved]
  - Headache [Unknown]
